FAERS Safety Report 6372537-X (Version None)
Quarter: 2009Q3

REPORT INFORMATION
  Report Type: 
  Country: None (occurrence: None)
  Receive Date: 20090924
  Receipt Date: 20080916
  Transmission Date: 20100115
  Serious: No
  Sender: FDA-Public Use
  Company Number: US-ASTRAZENECA-2008UW19370

PATIENT
  Age: 56 Year
  Sex: Male
  Weight: 63 kg

DRUGS (2)
  1. SEROQUEL [Suspect]
     Route: 048
     Dates: start: 20080901, end: 20080906
  2. SEROQUEL [Suspect]
     Route: 048
     Dates: start: 20080907

REACTIONS (2)
  - DEPRESSION [None]
  - FEELING OF DESPAIR [None]
